FAERS Safety Report 23889900 (Version 1)
Quarter: 2024Q2

REPORT INFORMATION
  Report Type: Spontaneous
  Country: US (occurrence: US)
  Receive Date: 20240523
  Receipt Date: 20240523
  Transmission Date: 20240716
  Serious: No
  Sender: FDA-Public Use
  Company Number: US-SA-2024SA147262

PATIENT
  Age: 39 Year
  Sex: Female

DRUGS (1)
  1. CEREZYME [Suspect]
     Active Substance: IMIGLUCERASE
     Indication: Fabry^s disease
     Dosage: 2000 U, QOW
     Route: 042
     Dates: start: 201609

REACTIONS (3)
  - Dyspnoea [Unknown]
  - Asthenia [Unknown]
  - Maternal exposure during pregnancy [Unknown]
